FAERS Safety Report 5946026-8 (Version None)
Quarter: 2008Q4

REPORT INFORMATION
  Report Type: 
  Country: None (occurrence: None)
  Receive Date: 20081106
  Receipt Date: 20081106
  Transmission Date: 20090506
  Serious: Yes (Hospitalization)
  Sender: FDA-Public Use
  Company Number: None

PATIENT
  Age: 48 Year
  Sex: Female
  Weight: 77.6 kg

DRUGS (5)
  1. IXABEPILONE -IXABEPILONE- BRISTOL MYERS SQUIBB [Suspect]
     Indication: BREAST CANCER METASTATIC
     Dosage: IV
     Route: 042
  2. TAXOTERE [Concomitant]
  3. EPIRUBICIN [Concomitant]
  4. CYTOXAN [Concomitant]
  5. AVASTIN [Concomitant]

REACTIONS (4)
  - ABASIA [None]
  - CONSTIPATION [None]
  - JAUNDICE [None]
  - URINARY INCONTINENCE [None]
